FAERS Safety Report 16901650 (Version 1)
Quarter: 2019Q4

REPORT INFORMATION
  Report Type: Spontaneous
  Country: US (occurrence: US)
  Receive Date: 20191010
  Receipt Date: 20191010
  Transmission Date: 20200122
  Serious: Yes (Hospitalization)
  Sender: FDA-Public Use
  Company Number: US-ROCHE-2380116

PATIENT
  Sex: Male

DRUGS (1)
  1. ESBRIET [Suspect]
     Active Substance: PIRFENIDONE
     Indication: IDIOPATHIC PULMONARY FIBROSIS
     Dosage: CURRENT
     Route: 048
     Dates: start: 20190627

REACTIONS (10)
  - Oropharyngeal pain [Unknown]
  - Cough [Unknown]
  - Pruritus [Unknown]
  - Headache [Unknown]
  - Dry skin [Unknown]
  - Rash [Unknown]
  - Dyspnoea [Unknown]
  - Dysphonia [Unknown]
  - Abdominal pain upper [Unknown]
  - Chest discomfort [Unknown]
